FAERS Safety Report 5135957-7 (Version None)
Quarter: 2006Q4

REPORT INFORMATION
  Report Type: 
  Country: None (occurrence: None)
  Receive Date: 20061020
  Receipt Date: 20061004
  Transmission Date: 20070319
  Serious: Yes (Hospitalization)
  Sender: FDA-Public Use
  Company Number: L06-NOR-04323-01

PATIENT
  Age: 74 Year
  Sex: Female

DRUGS (5)
  1. CITALOPRAM HYDROBROMIDE [Suspect]
     Indication: SOMATIC DELUSION
     Dosage: TABLET
  2. OLANZAPINE [Suspect]
     Indication: DEPRESSION
  3. OLANZAPINE [Suspect]
     Indication: SOMATIC DELUSION
  4. TOLVON (MIANSERIN HYDROCHLORIDE) [Suspect]
  5. FLUOXETINE [Suspect]
     Indication: DEPRESSION

REACTIONS (19)
  - COMA [None]
  - CONVULSION [None]
  - DRUG INTERACTION [None]
  - DRUG TOXICITY [None]
  - HEPATIC ENZYME INCREASED [None]
  - HYPERTENSION [None]
  - HYPOTENSION [None]
  - INCORRECT DOSE ADMINISTERED [None]
  - MICTURITION DISORDER [None]
  - MIOSIS [None]
  - MYOCLONUS [None]
  - PNEUMONIA [None]
  - PULMONARY EMBOLISM [None]
  - PUPILLARY REFLEX IMPAIRED [None]
  - SELF-MEDICATION [None]
  - SEROTONIN SYNDROME [None]
  - SUICIDE ATTEMPT [None]
  - TROPONIN T INCREASED [None]
  - UNEVALUABLE EVENT [None]
